FAERS Safety Report 16269619 (Version 1)
Quarter: 2019Q2

REPORT INFORMATION
  Report Type: Spontaneous
  Country: US (occurrence: US)
  Receive Date: 20190503
  Receipt Date: 20190503
  Transmission Date: 20190711
  Serious: No
  Sender: FDA-Public Use
  Company Number: US-VERTEX PHARMACEUTICALS-2019-003953

PATIENT
  Age: 7 Year
  Sex: Female

DRUGS (5)
  1. ORKAMBI [Suspect]
     Active Substance: IVACAFTOR\LUMACAFTOR
     Indication: CYSTIC FIBROSIS
     Dosage: 2 DOSAGE FORM (100/125 MG EACH), BID
     Route: 048
     Dates: start: 20180118
  2. ACETYLCYSTEIN [Concomitant]
     Active Substance: ACETYLCYSTEINE
  3. CEFDINIR. [Concomitant]
     Active Substance: CEFDINIR
  4. AUGMENTIN [Concomitant]
     Active Substance: AMOXICILLIN\CLAVULANATE POTASSIUM
  5. CAYSTON [Concomitant]
     Active Substance: AZTREONAM

REACTIONS (1)
  - Parainfluenzae virus infection [Unknown]

NARRATIVE: CASE EVENT DATE: 20190416
